FAERS Safety Report 9991635 (Version 2)
Quarter: 2014Q3

REPORT INFORMATION
  Report Type: Report from Study
  Country: ES (occurrence: ES)
  Receive Date: 20140310
  Receipt Date: 20140701
  Transmission Date: 20150326
  Serious: Yes (Hospitalization)
  Sender: FDA-Public Use
  Company Number: ES-MPIJNJ-2014JNJ000588

PATIENT

DRUGS (5)
  1. DEXAMETHASONE. [Suspect]
     Active Substance: DEXAMETHASONE
     Indication: PLASMA CELL MYELOMA
     Dosage: 40 MG, UNK
     Route: 048
     Dates: start: 20130619, end: 20140221
  2. PREDNISONE. [Suspect]
     Active Substance: PREDNISONE
     Indication: PLASMA CELL MYELOMA
     Dosage: 102 MG, UNK
     Route: 048
     Dates: start: 20120717, end: 20130512
  3. REVLIMID [Suspect]
     Active Substance: LENALIDOMIDE
     Indication: PLASMA CELL MYELOMA
     Dosage: 25 MG, UNK
     Route: 048
     Dates: start: 20130619, end: 20140223
  4. VELCADE [Suspect]
     Active Substance: BORTEZOMIB
     Indication: PLASMA CELL MYELOMA
     Dosage: 2.21 MG, UNK
     Route: 042
     Dates: start: 20120717, end: 20130604
  5. MELPHALAN [Suspect]
     Active Substance: MELPHALAN
     Indication: PLASMA CELL MYELOMA
     Dosage: 15.3 MG, UNK
     Route: 048
     Dates: start: 20120717, end: 20130517

REACTIONS (4)
  - Anaemia [Unknown]
  - Asthenia [Unknown]
  - Mucosal inflammation [Recovered/Resolved]
  - Performance status decreased [Not Recovered/Not Resolved]

NARRATIVE: CASE EVENT DATE: 20140224
